FAERS Safety Report 8215932-6 (Version None)
Quarter: 2012Q1

REPORT INFORMATION
  Report Type: 
  Country: None (occurrence: None)
  Receive Date: 20120316
  Receipt Date: 20120313
  Transmission Date: 20120608
  Serious: Yes (Other)
  Sender: FDA-Public Use
  Company Number: US-PFIZER INC-2011219173

PATIENT
  Sex: Female
  Weight: 64.4 kg

DRUGS (4)
  1. SUTENT [Suspect]
     Dosage: 25 MG, DAILY
     Route: 048
  2. ATENOLOL [Concomitant]
     Indication: HYPERTENSION
     Dosage: 25 MG, DAILY
  3. SUTENT [Suspect]
     Indication: RENAL CELL CARCINOMA
     Dosage: 37.5 MG, 1X/DAY
     Route: 048
     Dates: start: 20100401
  4. SUTENT [Suspect]
     Dosage: UNK
     Route: 048

REACTIONS (5)
  - CONTUSION [None]
  - URINARY TRACT INFECTION [None]
  - BLOOD URINE PRESENT [None]
  - EPISTAXIS [None]
  - STRESS URINARY INCONTINENCE [None]
